FAERS Safety Report 12735719 (Version 1)
Quarter: 2016Q3

REPORT INFORMATION
  Report Type: Spontaneous
  Country: BR (occurrence: BR)
  Receive Date: 20160912
  Receipt Date: 20160912
  Transmission Date: 20161109
  Serious: Yes (Other)
  Sender: FDA-Public Use
  Company Number: BR-GLAXOSMITHKLINE-BR2016GSK096510

PATIENT
  Sex: Female
  Weight: 73 kg

DRUGS (1)
  1. BENLYSTA [Suspect]
     Active Substance: BELIMUMAB
     Indication: SYSTEMIC LUPUS ERYTHEMATOSUS
     Dosage: UNK
     Dates: start: 20160201, end: 20160825

REACTIONS (5)
  - Lupus nephritis [Unknown]
  - Inappropriate schedule of drug administration [Unknown]
  - Haematuria [Unknown]
  - Drug ineffective [Recovered/Resolved]
  - Laboratory test abnormal [Unknown]
